FAERS Safety Report 20145114 (Version 2)
Quarter: 2022Q1

REPORT INFORMATION
  Report Type: Report from Study
  Country: US (occurrence: US)
  Receive Date: 20211203
  Receipt Date: 20220111
  Transmission Date: 20220424
  Serious: Yes (Other)
  Sender: FDA-Public Use
  Company Number: US-PFIZER INC-2016552300

PATIENT
  Age: 72 Year
  Sex: Female
  Weight: 30.385 kg

DRUGS (7)
  1. IBRANCE [Suspect]
     Active Substance: PALBOCICLIB
     Indication: Breast cancer metastatic
     Dosage: 125 MG, CYCLIC (DAILY FOR DAY 1 - DAY 21 FOLLOWED)
     Route: 048
     Dates: start: 20151031
  2. IBRANCE [Suspect]
     Active Substance: PALBOCICLIB
     Dosage: 75 MG, CYCLIC (EVERY 48 HOURS FOR 21 DAYS ON/7 DAYS OFF)
     Route: 048
     Dates: start: 20211120
  3. IBRANCE [Suspect]
     Active Substance: PALBOCICLIB
     Dosage: 75 MG, CYCLIC (75 MG 1 TAB Q 48 H, 21 DAYS ON, 7 DAYS OFF)
     Route: 048
     Dates: start: 201510
  4. FEMARA [Concomitant]
     Active Substance: LETROZOLE
     Dosage: UNK , DAILY
     Route: 048
  5. FASLODEX [Concomitant]
     Active Substance: FULVESTRANT
     Dosage: UNK
  6. XGEVA [Concomitant]
     Active Substance: DENOSUMAB
     Indication: Bone cancer metastatic
     Dosage: UNK
  7. FULVESTRANT [Concomitant]
     Active Substance: FULVESTRANT
     Indication: Bone cancer metastatic
     Dosage: UNK

REACTIONS (3)
  - Full blood count abnormal [Unknown]
  - Neutropenia [Unknown]
  - Neoplasm progression [Unknown]
